FAERS Safety Report 4580340-6 (Version None)
Quarter: 2005Q1

REPORT INFORMATION
  Report Type: 
  Country: None (occurrence: None)
  Receive Date: 20050214
  Receipt Date: 20031211
  Transmission Date: 20050727
  Serious: Yes (Other)
  Sender: FDA-Public Use
  Company Number: US-GLAXOSMITHKLINE-A0442774A

PATIENT
  Age: 41 Year
  Sex: Male

DRUGS (7)
  1. LAMICTAL [Suspect]
     Indication: BIPOLAR DISORDER
     Dosage: 300MG PER DAY
     Route: 048
  2. DEPAKOTE [Concomitant]
  3. SEROQUEL [Concomitant]
  4. EFFEXOR [Concomitant]
  5. ACCUPRIL [Concomitant]
  6. INSULIN [Concomitant]
  7. ZOCOR [Concomitant]

REACTIONS (5)
  - CATHETER RELATED INFECTION [None]
  - CHEST PAIN [None]
  - HALLUCINATION, AUDITORY [None]
  - HALLUCINATION, VISUAL [None]
  - LIVER FUNCTION TEST ABNORMAL [None]
